FAERS Safety Report 25745201 (Version 2)
Quarter: 2025Q4

REPORT INFORMATION
  Report Type: Report from Study
  Country: CO (occurrence: CO)
  Receive Date: 20250901
  Receipt Date: 20251013
  Transmission Date: 20260117
  Serious: Yes (Hospitalization, Other)
  Sender: ABBVIE
  Company Number: CO-ABBVIE-6434934

PATIENT
  Age: 61 Year
  Sex: Male
  Weight: 96 kg

DRUGS (1)
  1. SKYRIZI [Suspect]
     Active Substance: RISANKIZUMAB-RZAA
     Indication: Psoriasis
     Dosage: SKYRIZI PRE-FILLED SYRINGE 150 MG?SOLUTION FOR INJECTION IN PRE-FILLED SYRINGE
     Route: 058
     Dates: start: 20231116, end: 20250205

REACTIONS (10)
  - Oxygen saturation decreased [Not Recovered/Not Resolved]
  - Hyperplasia [Unknown]
  - Pulmonary artery aneurysm [Recovered/Resolved]
  - Respiratory distress [Not Recovered/Not Resolved]
  - Influenza like illness [Not Recovered/Not Resolved]
  - Cough [Not Recovered/Not Resolved]
  - Malaise [Not Recovered/Not Resolved]
  - Pleural effusion [Recovering/Resolving]
  - Flatulence [Unknown]
  - Pain [Unknown]

NARRATIVE: CASE EVENT DATE: 20250801
